FAERS Safety Report 7798518-7 (Version None)
Quarter: 2011Q4

REPORT INFORMATION
  Report Type: 
  Country: None (occurrence: None)
  Receive Date: 20111005
  Receipt Date: 20111004
  Transmission Date: 20120403
  Serious: Yes (Other)
  Sender: FDA-Public Use
  Company Number: US-ABBOTT-11P-163-0719682-00

PATIENT
  Sex: Female
  Weight: 119.4 kg

DRUGS (3)
  1. LISINOPRIL [Concomitant]
     Indication: PRODUCT USED FOR UNKNOWN INDICATION
  2. LUPRON DEPOT [Suspect]
     Indication: UTERINE LEIOMYOMA
     Dates: start: 20110201, end: 20110329
  3. NAPROSYN [Concomitant]
     Indication: PRODUCT USED FOR UNKNOWN INDICATION

REACTIONS (5)
  - ADHESION [None]
  - DYSMENORRHOEA [None]
  - UTERINE ENLARGEMENT [None]
  - LEIOMYOMA [None]
  - MENOMETRORRHAGIA [None]
